FAERS Safety Report 8238801-4 (Version None)
Quarter: 2012Q1

REPORT INFORMATION
  Report Type: 
  Country: None (occurrence: None)
  Receive Date: 20120327
  Receipt Date: 20120316
  Transmission Date: 20120608
  Serious: Yes (Hospitalization)
  Sender: FDA-Public Use
  Company Number: US-JNJFOC-20120205615

PATIENT
  Sex: Male
  Weight: 47 kg

DRUGS (17)
  1. ZOSYN [Concomitant]
  2. ALLEGRA [Concomitant]
  3. SINGULAIR [Concomitant]
  4. TPN [Concomitant]
  5. PEPCID [Concomitant]
  6. PROBIOTICS [Concomitant]
  7. IRON [Concomitant]
  8. MESALAMINE [Concomitant]
  9. FOLIC ACID [Concomitant]
  10. REMICADE [Suspect]
     Indication: IRRITABLE BOWEL SYNDROME
     Route: 042
     Dates: start: 20100722
  11. OMEPRAZOLE [Concomitant]
  12. MELATONIN [Concomitant]
  13. HUMIRA [Concomitant]
     Dates: start: 20100930, end: 20110809
  14. HYDROCORTISONE [Concomitant]
     Indication: INFLAMMATORY BOWEL DISEASE
  15. VANCOMYCIN [Concomitant]
  16. PREDNISONE TAB [Concomitant]
  17. MERCAPTOPURINE [Concomitant]

REACTIONS (2)
  - PROCTITIS [None]
  - INFECTIOUS PERITONITIS [None]
